FAERS Safety Report 8368498-4 (Version None)
Quarter: 2012Q2

REPORT INFORMATION
  Report Type: 
  Country: None (occurrence: None)
  Receive Date: 20120518
  Receipt Date: 20120509
  Transmission Date: 20120825
  Serious: Yes (Hospitalization)
  Sender: FDA-Public Use
  Company Number: FR-BIOGENIDEC-2011BI004213

PATIENT
  Age: 49 Year
  Sex: Female

DRUGS (5)
  1. PROANTHOCYANIDINE [Concomitant]
     Indication: OEDEMA
  2. CLONAZEPAM [Concomitant]
  3. COPAXONE [Concomitant]
     Dates: start: 20110207
  4. CHONDROITIN [Concomitant]
     Indication: OSTEOARTHRITIS
  5. TYSABRI [Suspect]
     Indication: MULTIPLE SCLEROSIS
     Route: 042
     Dates: start: 20080331, end: 20101129

REACTIONS (1)
  - INTERSTITIAL LUNG DISEASE [None]
